FAERS Safety Report 23408333 (Version 3)
Quarter: 2024Q1

REPORT INFORMATION
  Report Type: Report from Study
  Country: JP (occurrence: JP)
  Receive Date: 20240117
  Receipt Date: 20240229
  Transmission Date: 20240409
  Serious: Yes (Hospitalization, Other)
  Sender: FDA-Public Use
  Company Number: JP-INSMED-2023-01108-JPAA

PATIENT
  Sex: Female

DRUGS (2)
  1. ARIKAYCE [Suspect]
     Active Substance: AMIKACIN
     Indication: Product used for unknown indication
     Dosage: UNK
     Route: 055
     Dates: start: 20230407, end: 2024
  2. OXYGEN [Concomitant]
     Active Substance: OXYGEN
     Indication: Product used for unknown indication
     Dosage: UNK
     Route: 045

REACTIONS (26)
  - Lung disorder [Unknown]
  - Pneumonia [Unknown]
  - Pneumonia [Unknown]
  - Oxygen therapy [Not Recovered/Not Resolved]
  - Oxygen saturation decreased [Not Recovered/Not Resolved]
  - Sputum retention [Not Recovered/Not Resolved]
  - Dysphagia [Unknown]
  - Thirst [Unknown]
  - Sputum increased [Not Recovered/Not Resolved]
  - Dysgeusia [Unknown]
  - Aphonia [Not Recovered/Not Resolved]
  - Dry mouth [Not Recovered/Not Resolved]
  - Oral discomfort [Unknown]
  - Cough [Not Recovered/Not Resolved]
  - Oropharyngeal discomfort [Unknown]
  - Malaise [Unknown]
  - Dysphonia [Unknown]
  - Dizziness [Unknown]
  - Haemoptysis [Unknown]
  - Dyspnoea [Not Recovered/Not Resolved]
  - Wrong technique in device usage process [Unknown]
  - Product packaging difficult to open [Unknown]
  - Incorrect product administration duration [Unknown]
  - Accidental underdose [Unknown]
  - Product use issue [Unknown]
  - Device issue [Unknown]

NARRATIVE: CASE EVENT DATE: 20230101
